FAERS Safety Report 5705166-9 (Version None)
Quarter: 2008Q2

REPORT INFORMATION
  Report Type: 
  Country: None (occurrence: None)
  Receive Date: 20080410
  Receipt Date: 20080325
  Transmission Date: 20081010
  Serious: Yes (Death)
  Sender: FDA-Public Use
  Company Number: GXKR2008US03081

PATIENT
  Age: 48 Year
  Sex: Female

DRUGS (4)
  1. ZOLPIDEM [Suspect]
     Indication: INTENTIONAL OVERDOSE
  2. OXYCODONE HYDROCHLORIDE [Suspect]
     Indication: INTENTIONAL OVERDOSE
  3. ACETAMINOPHEN [Suspect]
     Indication: INTENTIONAL OVERDOSE
  4. TRAZODONE HCL [Suspect]
     Indication: DEPRESSION
     Dosage: 50 MG, QD, ORAL
     Route: 048
     Dates: start: 20050101

REACTIONS (2)
  - COMPLETED SUICIDE [None]
  - MULTIPLE DRUG OVERDOSE INTENTIONAL [None]
